FAERS Safety Report 19348430 (Version 1)
Quarter: 2021Q2

REPORT INFORMATION
  Report Type: Spontaneous
  Country: US (occurrence: US)
  Receive Date: 20210531
  Receipt Date: 20210531
  Transmission Date: 20210717
  Serious: Yes (Death, Other)
  Sender: FDA-Public Use
  Company Number: US-PURDUE-USA-2020-0159268

PATIENT
  Sex: Female

DRUGS (47)
  1. OXYCONTIN [Suspect]
     Active Substance: OXYCODONE HYDROCHLORIDE
     Indication: PRODUCT USED FOR UNKNOWN INDICATION
     Dosage: UNK
     Route: 048
  2. BUPRENORPHINE TRANSDERMAL PATCH (SIMILAR TO NDA 21?306) [Suspect]
     Active Substance: BUPRENORPHINE
     Indication: PRODUCT USED FOR UNKNOWN INDICATION
     Dosage: UNK
     Route: 062
  3. MORPHINE SULFATE EXTENDED?RELEASE TABLETS (RHODES 74?769, 74?862) [Suspect]
     Active Substance: MORPHINE SULFATE
     Indication: PRODUCT USED FOR UNKNOWN INDICATION
     Dosage: UNK
     Route: 048
  4. PERCOCET                           /00446701/ [Suspect]
     Active Substance: ACETAMINOPHEN\OXYCODONE HYDROCHLORIDE\OXYCODONE TEREPHTHALATE
     Indication: SPINAL DISORDER
     Dosage: UNK
     Route: 065
  5. DOXEPIN [Concomitant]
     Active Substance: DOXEPIN
     Indication: NEUROPATHY PERIPHERAL
     Dosage: 150 MG, DAILY
     Route: 065
     Dates: start: 2009
  6. DOXEPIN [Concomitant]
     Active Substance: DOXEPIN
     Indication: DEPRESSION
     Dosage: 25 MG, HS,
     Route: 048
     Dates: start: 20120510
  7. PAXIL [Concomitant]
     Active Substance: PAROXETINE HYDROCHLORIDE
     Dosage: 30 MG, AM,
     Route: 048
     Dates: start: 20130208
  8. TIZANIDINE. [Concomitant]
     Active Substance: TIZANIDINE
     Indication: PAIN
     Dosage: 4 MG,7 TIMES DAILY
     Route: 065
  9. SOMA [Concomitant]
     Active Substance: CARISOPRODOL
     Indication: PRODUCT USED FOR UNKNOWN INDICATION
     Dosage: 350 MG, TID, TAB
     Route: 048
     Dates: start: 20140805
  10. VALIUM [Concomitant]
     Active Substance: DIAZEPAM
     Indication: PRODUCT USED FOR UNKNOWN INDICATION
     Dosage: 10 MG, TID
     Route: 048
     Dates: start: 20140805
  11. METHADOSE [Suspect]
     Active Substance: METHADONE HYDROCHLORIDE
     Indication: PRODUCT USED FOR UNKNOWN INDICATION
     Dosage: UNK
     Route: 065
  12. DOXEPIN [Concomitant]
     Active Substance: DOXEPIN
     Dosage: 150 MG, HS
     Route: 048
     Dates: start: 20121130
  13. DOXEPIN [Concomitant]
     Active Substance: DOXEPIN
     Dosage: 150 MG, HS
     Route: 048
     Dates: start: 20130506
  14. DOXEPIN [Concomitant]
     Active Substance: DOXEPIN
     Dosage: 150 MG, HS
     Route: 048
     Dates: start: 20140805
  15. PAXIL [Concomitant]
     Active Substance: PAROXETINE HYDROCHLORIDE
     Indication: DEPRESSION
     Dosage: 30 MG, BID
     Route: 065
     Dates: start: 2006
  16. TIZANIDINE. [Concomitant]
     Active Substance: TIZANIDINE
     Indication: NEUROPATHY PERIPHERAL
  17. GABAPENTIN. [Concomitant]
     Active Substance: GABAPENTIN
     Dosage: 600 MG, QID
     Route: 048
  18. AMLODIPINE BESYLATE. [Concomitant]
     Active Substance: AMLODIPINE BESYLATE
     Indication: BLOOD CHOLESTEROL
     Dosage: 5 MG, DAILY
     Route: 065
     Dates: start: 2012
  19. TRAMADOL HYDROCHLORIDE. [Suspect]
     Active Substance: TRAMADOL HYDROCHLORIDE
     Indication: PRODUCT USED FOR UNKNOWN INDICATION
     Dosage: UNK
     Route: 048
  20. HYDROMORPHONE TABLETS [Suspect]
     Active Substance: HYDROMORPHONE
     Indication: PRODUCT USED FOR UNKNOWN INDICATION
     Dosage: UNK
     Route: 048
  21. HYDROCODONE BITARTRATE (SIMILAR TO NDA 206627) [Suspect]
     Active Substance: HYDROCODONE BITARTRATE
     Indication: NEURALGIA
     Dosage: UNK, TID, 10/325
     Route: 048
     Dates: start: 2008
  22. METHADONE [Suspect]
     Active Substance: METHADONE HYDROCHLORIDE
     Indication: SPINAL DISORDER
     Dosage: UNK
     Route: 065
  23. PAXIL [Concomitant]
     Active Substance: PAROXETINE HYDROCHLORIDE
     Dosage: 30 MG, AM, 2
     Route: 048
     Dates: start: 20120510
  24. PAXIL [Concomitant]
     Active Substance: PAROXETINE HYDROCHLORIDE
     Dosage: 30 MG, AM,
     Route: 048
     Dates: start: 20121130
  25. DOXEPIN [Concomitant]
     Active Substance: DOXEPIN
     Dosage: 150 MG, HS
     Route: 048
     Dates: start: 20131107
  26. METFORMIN [Concomitant]
     Active Substance: METFORMIN HYDROCHLORIDE
     Indication: DIABETES MELLITUS
     Dosage: 500 MG, QID
     Route: 065
     Dates: start: 2009
  27. OXYCODONE HCL CR TABLETS (SIMILAR TO NDA 22?272) [Suspect]
     Active Substance: OXYCODONE HYDROCHLORIDE
     Indication: PRODUCT USED FOR UNKNOWN INDICATION
     Dosage: UNK
     Route: 048
  28. DOXEPIN [Concomitant]
     Active Substance: DOXEPIN
     Dosage: 150 MG, HS
     Route: 048
     Dates: start: 20140219
  29. PAXIL [Concomitant]
     Active Substance: PAROXETINE HYDROCHLORIDE
     Dosage: 30 MG, AM, 2
     Route: 048
     Dates: start: 20120119
  30. OXYCODONE HCL TABLETS (RHODES 91?490) [Suspect]
     Active Substance: OXYCODONE HYDROCHLORIDE
     Indication: PRODUCT USED FOR UNKNOWN INDICATION
     Dosage: UNK
     Route: 048
  31. FENOFIBRATE. [Suspect]
     Active Substance: FENOFIBRATE
     Indication: BLOOD CHOLESTEROL
     Dosage: 150 MG, DAILY
     Route: 065
     Dates: start: 2007
  32. AMBIEN [Concomitant]
     Active Substance: ZOLPIDEM TARTRATE
     Indication: PRODUCT USED FOR UNKNOWN INDICATION
     Dosage: 10 MG, HS
     Route: 048
     Dates: start: 20090730
  33. DOXEPIN [Concomitant]
     Active Substance: DOXEPIN
     Dosage: 100 MG, HS
     Route: 048
     Dates: start: 20120810
  34. DOXEPIN [Concomitant]
     Active Substance: DOXEPIN
     Dosage: 150 MG, HS
     Route: 048
     Dates: start: 20130507
  35. DIAZEPAM. [Concomitant]
     Active Substance: DIAZEPAM
     Indication: PRODUCT USED FOR UNKNOWN INDICATION
     Dosage: 10 MG, TID PRN
     Route: 048
  36. DOXEPIN [Concomitant]
     Active Substance: DOXEPIN
     Dosage: 100 MG, HS
     Route: 048
     Dates: start: 20110719
  37. DOXEPIN [Concomitant]
     Active Substance: DOXEPIN
     Dosage: 150 MG, HS
     Route: 048
     Dates: start: 20130208
  38. PAXIL [Concomitant]
     Active Substance: PAROXETINE HYDROCHLORIDE
     Dosage: 30 MG, AM,
     Route: 048
     Dates: start: 20120810
  39. GABAPENTIN. [Concomitant]
     Active Substance: GABAPENTIN
     Indication: NEURALGIA
     Dosage: 800 MG, QID
     Route: 065
     Dates: start: 2009
  40. METFORMIN [Concomitant]
     Active Substance: METFORMIN HYDROCHLORIDE
     Indication: NEUROPATHY PERIPHERAL
  41. HYDROCODONE BITARTRATE AND ACETAMINOPHEN [Suspect]
     Active Substance: ACETAMINOPHEN\HYDROCODONE BITARTRATE
     Indication: SPINAL DISORDER
     Dosage: UNK
     Route: 048
  42. OXYCODONE/ ACETAMINOPHEN TABLETS [Suspect]
     Active Substance: ACETAMINOPHEN\OXYCODONE HYDROCHLORIDE
     Indication: PRODUCT USED FOR UNKNOWN INDICATION
     Dosage: UNK
     Route: 048
  43. HYDROCHLOROTHIAZID [Concomitant]
     Active Substance: HYDROCHLOROTHIAZIDE
     Indication: BLOOD PRESSURE INCREASED
     Dosage: 12.5 MG, DAILY
     Route: 065
     Dates: start: 2010
  44. OMEPRAZOLE. [Concomitant]
     Active Substance: OMEPRAZOLE
     Indication: PROPHYLAXIS
     Dosage: 40 MG, DAILY
     Route: 065
     Dates: start: 2010
  45. POTASSIUM [Concomitant]
     Active Substance: POTASSIUM
     Indication: MINERAL SUPPLEMENTATION
     Dosage: 10 MEQ, TID
     Route: 065
     Dates: start: 2011
  46. VITAMIN D                          /00107901/ [Concomitant]
     Active Substance: ERGOCALCIFEROL
     Indication: VITAMIN D DEFICIENCY
     Dosage: 50 IU, WEEKLY
     Route: 065
     Dates: start: 2012
  47. PROAIR HFA [Concomitant]
     Active Substance: ALBUTEROL SULFATE
     Indication: ASTHMA
     Dosage: UNK, TID
     Route: 065
     Dates: start: 2012

REACTIONS (5)
  - Back pain [Unknown]
  - Mental disorder [Unknown]
  - Accidental overdose [Fatal]
  - Emotional distress [Unknown]
  - Drug dependence [Unknown]

NARRATIVE: CASE EVENT DATE: 20170212
